FAERS Safety Report 12668214 (Version 1)
Quarter: 2016Q3

REPORT INFORMATION
  Report Type: Spontaneous
  Country: FR (occurrence: FR)
  Receive Date: 20160819
  Receipt Date: 20160819
  Transmission Date: 20161109
  Serious: Yes (Hospitalization)
  Sender: FDA-Public Use
  Company Number: FR-SA-2016SA149127

PATIENT
  Age: 53 Year
  Sex: Male

DRUGS (2)
  1. IMOVANE [Suspect]
     Active Substance: ZOPICLONE
     Route: 002
     Dates: start: 2011
  2. ZOLPIDEM [Suspect]
     Active Substance: ZOLPIDEM\ZOLPIDEM TARTRATE
     Route: 002
     Dates: start: 2011

REACTIONS (2)
  - Toxicity to various agents [Recovered/Resolved]
  - Drug dependence [Unknown]
